FAERS Safety Report 8893131 (Version 1)
Quarter: 2012Q4

REPORT INFORMATION
  Report Type: 
  Country: US (occurrence: US)
  Receive Date: 20121107
  Receipt Date: 20121107
  Transmission Date: 20130627
  Serious: Yes (Hospitalization)
  Sender: FDA-Public Use
  Company Number: US-AMGEN-USASP2011054062

PATIENT
  Age: 41 Year
  Sex: Female
  Weight: 77 kg

DRUGS (19)
  1. ENBREL [Suspect]
     Indication: PRODUCT USED FOR UNKNOWN INDICATION
     Dosage: 50 mg, qwk
  2. FLEXERIL                           /00428402/ [Concomitant]
     Dosage: 10 mg, UNK
  3. TOPAMAX [Concomitant]
     Dosage: 100 mg, UNK
  4. FLUCONAZOLE [Concomitant]
     Dosage: 150 mg, UNK
  5. TRILIPIX [Concomitant]
     Dosage: 135 mg, UNK
  6. GABAPENTIN [Concomitant]
     Dosage: 100 mg, UNK
  7. LISINOPRIL [Concomitant]
     Dosage: 10 mg, UNK
  8. PRAVASTATIN [Concomitant]
     Dosage: 20 mg, UNK
  9. ALBUTEROL                          /00139501/ [Concomitant]
     Dosage: 90 mug, UNK
  10. IMITREX                            /01044801/ [Concomitant]
     Dosage: 25 mg, UNK
  11. ESTRADIOL [Concomitant]
     Dosage: 0.025 mg, UNK
  12. OXYCODONE [Concomitant]
     Dosage: 5 mg, UNK
  13. MORPHINE SULFATE [Concomitant]
     Dosage: 60 mg, UNK
  14. MULTIVITAMIN                       /00097801/ [Concomitant]
  15. PREDNISONE [Concomitant]
     Dosage: 10 mg, UNK
  16. FISH OIL [Concomitant]
  17. FOLIC ACID [Concomitant]
     Dosage: 5 mg, UNK
  18. ESTROVEN [Concomitant]
  19. BUTALBITAL [Concomitant]

REACTIONS (1)
  - Pyrexia [Unknown]
